FAERS Safety Report 7389306-4 (Version None)
Quarter: 2011Q2

REPORT INFORMATION
  Report Type: 
  Country: None (occurrence: None)
  Receive Date: 20110401
  Receipt Date: 20110322
  Transmission Date: 20111010
  Serious: Yes (Death, Hospitalization)
  Sender: FDA-Public Use
  Company Number: A0887655A

PATIENT
  Age: 73 Year
  Sex: Male

DRUGS (2)
  1. ROSIGLITAZONE MALEATE [Suspect]
     Dosage: 4MG PER DAY
     Route: 048
     Dates: start: 20000901, end: 20070209
  2. AVANDIA [Suspect]
     Dosage: 4MG PER DAY
     Route: 048
     Dates: start: 20011107, end: 20070209

REACTIONS (6)
  - CARDIOMYOPATHY [None]
  - SUDDEN CARDIAC DEATH [None]
  - MYOCARDIAL INFARCTION [None]
  - ATRIAL FIBRILLATION [None]
  - ARTERIOSCLEROSIS CORONARY ARTERY [None]
  - VENTRICULAR EXTRASYSTOLES [None]
